FAERS Safety Report 9257931 (Version 1)
Quarter: 2013Q1

REPORT INFORMATION
  Report Type: Spontaneous
  Country: US (occurrence: None)
  Receive Date: 20121212
  Receipt Date: 20121212
  Transmission Date: 20140127
  Serious: No
  Sender: FDA-Public Use
  Company Number: 1208USA007174

PATIENT
  Age: 73 Year
  Sex: Female

DRUGS (3)
  1. VICTRELIS [Suspect]
     Indication: HEPATITIS C
     Route: 048
     Dates: start: 20120625
  2. RIBASPHERE (RIBAVIRIN) [Concomitant]
  3. PEGASYS (PEGINTERFERON ALFA-2A) [Concomitant]

REACTIONS (6)
  - Abdominal distension [None]
  - Gastric disorder [None]
  - Nausea [None]
  - Vomiting [None]
  - Fatigue [None]
  - Insomnia [None]
